FAERS Safety Report 19464600 (Version 2)
Quarter: 2021Q2

REPORT INFORMATION
  Report Type: Spontaneous
  Country: DK (occurrence: DK)
  Receive Date: 20210626
  Receipt Date: 20210626
  Transmission Date: 20210717
  Serious: Yes (Other)
  Sender: FDA-Public Use
  Company Number: DK-BION-009880

PATIENT
  Age: 53 Year
  Sex: Male

DRUGS (5)
  1. VALPROIC ACID. [Suspect]
     Active Substance: VALPROIC ACID
     Indication: ANXIETY
     Dosage: INCREASED FROM 300 TO 900 MG/DAY OVER A PERIOD OF 35 DAYS, INCREASED 1200 MG/DAY
  2. CLOZAPINE. [Interacting]
     Active Substance: CLOZAPINE
     Indication: SCHIZOPHRENIA
     Dosage: INCREASED FROM 12.5 TO 550 MG/DAY IN 11 MONTHS, LOWER DAILY DOSE OF 300 MG
  3. BUPRENORPHINE/NALOXONE [Concomitant]
     Active Substance: BUPRENORPHINE\NALOXONE
     Dosage: 8 + 2 MG/DAY
  4. LEVOTHYROXINE. [Concomitant]
     Active Substance: LEVOTHYROXINE
     Dosage: 150?200 UG/DAY
  5. METOPROLOL. [Concomitant]
     Active Substance: METOPROLOL
     Dosage: CONSTANT DOSE FOR MORE THAN 3 YEARS

REACTIONS (7)
  - Stupor [Unknown]
  - Product use in unapproved indication [Not Recovered/Not Resolved]
  - Oropharyngeal pain [Unknown]
  - Leukopenia [Recovered/Resolved]
  - Pyrexia [Unknown]
  - Neutropenia [Recovered/Resolved]
  - Drug interaction [Unknown]
